FAERS Safety Report 8475571-9 (Version None)
Quarter: 2012Q2

REPORT INFORMATION
  Report Type: 
  Country: None (occurrence: None)
  Receive Date: 20120628
  Receipt Date: 20120621
  Transmission Date: 20120825
  Serious: Yes (Hospitalization)
  Sender: FDA-Public Use
  Company Number: US-ABBOTT-11P-163-0725123-00

PATIENT
  Sex: Female
  Weight: 61.29 kg

DRUGS (4)
  1. HUMIRA [Suspect]
     Indication: CROHN'S DISEASE
     Route: 058
     Dates: start: 20100401, end: 20110501
  2. HUMIRA [Suspect]
     Dates: start: 20110501
  3. ENTOCORT EC [Concomitant]
     Indication: CROHN'S DISEASE
  4. PREDNISONE TAB [Concomitant]
     Indication: CROHN'S DISEASE

REACTIONS (9)
  - COLITIS [None]
  - GASTROINTESTINAL INFLAMMATION [None]
  - DEHYDRATION [None]
  - DIARRHOEA [None]
  - SENSORY DISTURBANCE [None]
  - INJECTION SITE PAIN [None]
  - CROHN'S DISEASE [None]
  - CYSTITIS [None]
  - ARTHRALGIA [None]
